FAERS Safety Report 10045691 (Version 2)
Quarter: 2016Q3

REPORT INFORMATION
  Report Type: Spontaneous
  Country: US (occurrence: US)
  Receive Date: 20140328
  Receipt Date: 20160802
  Transmission Date: 20161108
  Serious: Yes (Hospitalization)
  Sender: FDA-Public Use
  Company Number: US-B.I. PHARMACEUTICALS,INC./RIDGEFIELD-2014-BI-12886BP

PATIENT
  Age: 68 Year
  Sex: Male

DRUGS (1)
  1. PRADAXA [Suspect]
     Active Substance: DABIGATRAN ETEXILATE MESYLATE
     Indication: ATRIAL FIBRILLATION
     Dosage: 300 MG
     Route: 065
     Dates: start: 20101122, end: 20131002

REACTIONS (3)
  - Haemorrhage [Unknown]
  - Gastrointestinal ulcer haemorrhage [Unknown]
  - Coagulopathy [Unknown]

NARRATIVE: CASE EVENT DATE: 20131002
